FAERS Safety Report 17427680 (Version 2)
Quarter: 2020Q1

REPORT INFORMATION
  Report Type: Spontaneous
  Country: US (occurrence: US)
  Receive Date: 20200218
  Receipt Date: 20200303
  Transmission Date: 20200409
  Serious: Yes (Hospitalization)
  Sender: FDA-Public Use
  Company Number: US-ROCHE-2550005

PATIENT
  Sex: Female

DRUGS (1)
  1. ALTEPLASE. [Suspect]
     Active Substance: ALTEPLASE
     Indication: ISCHAEMIC STROKE
     Dosage: TOTAL DOSE OF 72.9 MG WITH AN 8.1 MG BOLUS
     Route: 065
     Dates: start: 20200209, end: 20200209

REACTIONS (6)
  - Blood creatine phosphokinase increased [Recovered/Resolved]
  - Blood creatinine increased [Recovered/Resolved]
  - Ecchymosis [Recovered/Resolved]
  - White blood cell count increased [Recovered/Resolved]
  - Cerebrovascular accident [Recovered/Resolved]
  - Agitation [Recovered/Resolved]
